FAERS Safety Report 8459360-7 (Version None)
Quarter: 2012Q2

REPORT INFORMATION
  Report Type: 
  Country: None (occurrence: None)
  Receive Date: 20120615
  Receipt Date: 20120531
  Transmission Date: 20120825
  Serious: No
  Sender: FDA-Public Use
  Company Number: 2012P1037501

PATIENT
  Age: 63 Year
  Sex: Male

DRUGS (7)
  1. MAGNESIUM GLYCEROPHOSPHATE [Concomitant]
  2. SIMVASTATIN [Concomitant]
  3. LANSOPRAZOLE [Suspect]
     Indication: BARRETT'S OESOPHAGUS
     Dosage: 30 MG; QD; PO, 15 MG; QD; PO, 30 MG; QD; PO, 15 MG; QD; PO, 30 MG; QD; PO
     Route: 048
  4. RANITIDINE HCL [Suspect]
     Indication: GASTROOESOPHAGEAL REFLUX DISEASE
  5. RANITIDINE HCL [Suspect]
     Indication: GASTRITIS EROSIVE
  6. RANITIDINE HCL [Suspect]
     Indication: DUODENITIS
  7. AMLODIPINE [Concomitant]

REACTIONS (6)
  - DISEASE PROGRESSION [None]
  - ABDOMINAL PAIN [None]
  - DUODENITIS [None]
  - HYPOMAGNESAEMIA [None]
  - BARRETT'S OESOPHAGUS [None]
  - DIARRHOEA [None]
